FAERS Safety Report 9878136 (Version 1)
Quarter: 2014Q1

REPORT INFORMATION
  Report Type: Spontaneous
  Country: FR (occurrence: FR)
  Receive Date: 20140206
  Receipt Date: 20140206
  Transmission Date: 20141002
  Serious: Yes (Other)
  Sender: FDA-Public Use
  Company Number: FR-BAXTER-2014BAX004386

PATIENT
  Age: 58 Year
  Sex: Male

DRUGS (18)
  1. ENDOXAN 50 MG, COMPRIM? ENROB? [Suspect]
     Indication: WALDENSTROM^S MACROGLOBULINAEMIA
     Route: 048
     Dates: start: 20130626, end: 20130630
  2. ENDOXAN 50 MG, COMPRIM? ENROB? [Suspect]
     Route: 048
     Dates: start: 20130717
  3. ENDOXAN 50 MG, COMPRIM? ENROB? [Suspect]
     Route: 048
     Dates: start: 20130813
  4. ENDOXAN 50 MG, COMPRIM? ENROB? [Suspect]
     Route: 048
     Dates: start: 20130904
  5. ENDOXAN 50 MG, COMPRIM? ENROB? [Suspect]
     Route: 048
     Dates: start: 20130925
  6. ENDOXAN 50 MG, COMPRIM? ENROB? [Suspect]
     Route: 048
     Dates: start: 20131028, end: 20131101
  7. MABTHERA [Suspect]
     Indication: WALDENSTROM^S MACROGLOBULINAEMIA
     Route: 042
     Dates: start: 20130626
  8. MABTHERA [Suspect]
     Route: 042
     Dates: start: 20130717
  9. MABTHERA [Suspect]
     Route: 042
     Dates: start: 20130813
  10. MABTHERA [Suspect]
     Route: 042
     Dates: start: 20130904
  11. MABTHERA [Suspect]
     Route: 042
     Dates: start: 20130925
  12. MABTHERA [Suspect]
     Route: 042
     Dates: start: 20131028
  13. DEXAMETHASONE [Suspect]
     Indication: WALDENSTROM^S MACROGLOBULINAEMIA
     Route: 042
     Dates: start: 20130626
  14. DEXAMETHASONE [Suspect]
     Route: 042
     Dates: start: 20130717
  15. DEXAMETHASONE [Suspect]
     Route: 042
     Dates: start: 20130813
  16. DEXAMETHASONE [Suspect]
     Route: 042
     Dates: start: 20130904
  17. DEXAMETHASONE [Suspect]
     Route: 042
     Dates: start: 20130925
  18. DEXAMETHASONE [Suspect]
     Route: 042
     Dates: start: 20131028

REACTIONS (3)
  - Supraventricular tachycardia [Recovered/Resolved]
  - Tinnitus [Not Recovered/Not Resolved]
  - Condition aggravated [Recovered/Resolved]
